FAERS Safety Report 17571400 (Version 1)
Quarter: 2020Q1

REPORT INFORMATION
  Report Type: Spontaneous
  Country: MX (occurrence: MX)
  Receive Date: 20200316
  Receipt Date: 20200316
  Transmission Date: 20200409
  Serious: Yes (Hospitalization)
  Sender: FDA-Public Use
  Company Number: None

PATIENT
  Age: 85 Year
  Sex: Female
  Weight: 78 kg

DRUGS (5)
  1. RMFLEX [Suspect]
     Active Substance: DIETARY SUPPLEMENT
  2. PIROXICAM. [Suspect]
     Active Substance: PIROXICAM
  3. LEVOFLOXACINA [Concomitant]
     Active Substance: LEVOFLOXACIN
  4. CALCORT [Concomitant]
     Active Substance: DEFLAZACORT
  5. FLAGENASE [Concomitant]

REACTIONS (2)
  - Peritonitis [None]
  - Gastric perforation [None]

NARRATIVE: CASE EVENT DATE: 20200228
